FAERS Safety Report 6255742-2 (Version None)
Quarter: 2009Q3

REPORT INFORMATION
  Report Type: 
  Country: None (occurrence: None)
  Receive Date: 20090701
  Receipt Date: 20090622
  Transmission Date: 20100115
  Serious: Yes (Congenital Anomaly)
  Sender: FDA-Public Use
  Company Number: GXKR2009S107249

PATIENT

DRUGS (2)
  1. IRBESARTAN [Suspect]
     Dosage: 150-300 MG/D (MATERNAL DOSE), TRANSPLACENTAL
     Route: 064
  2. BISOPROLOL FUMARATE [Suspect]
     Dosage: 5 MG/D (MATERNAL DOSE)

REACTIONS (4)
  - CONGENITAL ANOMALY [None]
  - MATERNAL DRUGS AFFECTING FOETUS [None]
  - OLIGOHYDRAMNIOS [None]
  - SMALL FOR DATES BABY [None]
